FAERS Safety Report 18823040 (Version 1)
Quarter: 2021Q1

REPORT INFORMATION
  Report Type: Spontaneous
  Country: TH (occurrence: TH)
  Receive Date: 20210202
  Receipt Date: 20210202
  Transmission Date: 20210419
  Serious: Yes (Hospitalization, Other)
  Sender: FDA-Public Use
  Company Number: TH-AMNEAL PHARMACEUTICALS-2021-AMRX-00225

PATIENT
  Age: 40 Year
  Sex: Male

DRUGS (24)
  1. PROPOFOL. [Concomitant]
     Active Substance: PROPOFOL
     Indication: SEDATIVE THERAPY
     Dosage: UNK (200MG/H AT 6 HR)
     Route: 065
  2. PROPOFOL. [Concomitant]
     Active Substance: PROPOFOL
     Dosage: UNK (100MG/H AT 12 HR)
     Route: 065
  3. FENTANYL. [Concomitant]
     Active Substance: FENTANYL
     Dosage: 50 MCG/HOUR (AT 54 HR)
     Route: 065
  4. MIDAZOLAM. [Concomitant]
     Active Substance: MIDAZOLAM
     Dosage: UNK (4MG/H AT 32 HR)
     Route: 065
  5. TIOTROPIUM BROMIDE [Concomitant]
     Active Substance: TIOTROPIUM BROMIDE
     Indication: RESPIRATORY FAILURE
     Dosage: UNK
     Route: 065
  6. PROPOFOL. [Concomitant]
     Active Substance: PROPOFOL
     Dosage: UNK (100MG/H AT 24 HR)
     Route: 065
  7. FENTANYL. [Concomitant]
     Active Substance: FENTANYL
     Dosage: 80 MCG/HOUR (AT 6 HR)
     Route: 065
  8. MIDAZOLAM. [Concomitant]
     Active Substance: MIDAZOLAM
     Dosage: UNK (5MG/H AT 6 HR)
     Route: 065
  9. FENTANYL. [Concomitant]
     Active Substance: FENTANYL
     Dosage: 80 MCG/HOUR (AT 32 HR)
     Route: 065
  10. FLUTICASONE PROPIONATE;SALMETEROL [Concomitant]
     Active Substance: FLUTICASONE PROPIONATE\SALMETEROL XINAFOATE
     Indication: RESPIRATORY FAILURE
     Dosage: UNK (4 INHALATIONS EVERY 12 H)
  11. ALBUTEROL SULFATE. [Suspect]
     Active Substance: ALBUTEROL SULFATE
     Indication: RESPIRATORY FAILURE
     Dosage: 100MCG/PUFF (4?8 PUFFS EVERY 15?30 MIN) (TOTAL 315 PUFFS)
     Route: 065
  12. PROPOFOL. [Concomitant]
     Active Substance: PROPOFOL
     Dosage: UNK (60MG/H AT 32 HR)
     Route: 065
  13. CEFTRIAXONE. [Concomitant]
     Active Substance: CEFTRIAXONE
     Indication: PRODUCT USED FOR UNKNOWN INDICATION
     Dosage: UNK
     Route: 065
  14. RINGER LACTATED [Concomitant]
     Indication: PRODUCT USED FOR UNKNOWN INDICATION
     Dosage: UNK
     Route: 065
  15. FENTANYL. [Concomitant]
     Active Substance: FENTANYL
     Dosage: 50 MCG/HOUR (AT 12 HR)
     Route: 065
  16. MIDAZOLAM. [Concomitant]
     Active Substance: MIDAZOLAM
     Indication: SEDATIVE THERAPY
     Dosage: UNK (4MG/H AT 0 HR)
     Route: 065
  17. MIDAZOLAM. [Concomitant]
     Active Substance: MIDAZOLAM
     Dosage: UNK (6MG/H AT 12 HR)
     Route: 065
  18. MAGNESIUM SULPHATE [MAGNESIUM SULFATE] [Concomitant]
     Active Substance: MAGNESIUM SULFATE
     Indication: PRODUCT USED FOR UNKNOWN INDICATION
     Dosage: UNK (INFUSION)
     Route: 065
  19. FENTANYL. [Concomitant]
     Active Substance: FENTANYL
     Dosage: 80 MCG/HOUR (AT 48 HR)
     Route: 065
  20. FENTANYL. [Concomitant]
     Active Substance: FENTANYL
     Indication: SEDATIVE THERAPY
     Dosage: 50 MCG/HOUR (AT 0 HR)
     Route: 065
  21. OSELTAMIVIR [Concomitant]
     Active Substance: OSELTAMIVIR
     Indication: PRODUCT USED FOR UNKNOWN INDICATION
     Dosage: UNK
     Route: 065
  22. FENTANYL. [Concomitant]
     Active Substance: FENTANYL
     Dosage: 80 MCG/HOUR (AT 24 HR)
     Route: 065
  23. MIDAZOLAM. [Concomitant]
     Active Substance: MIDAZOLAM
     Dosage: UNK (6MG/H AT 24 HR)
     Route: 065
  24. AZITHROMYCIN ANHYDROUS. [Concomitant]
     Active Substance: AZITHROMYCIN ANHYDROUS
     Indication: PRODUCT USED FOR UNKNOWN INDICATION
     Dosage: UNK
     Route: 065

REACTIONS (2)
  - Toxicity to various agents [Recovered/Resolved]
  - Lactic acidosis [Recovered/Resolved]
